FAERS Safety Report 7379213-5 (Version None)
Quarter: 2011Q1

REPORT INFORMATION
  Report Type: 
  Country: None (occurrence: None)
  Receive Date: 20110328
  Receipt Date: 20110316
  Transmission Date: 20110831
  Serious: Yes (Other)
  Sender: FDA-Public Use
  Company Number: AR-GENENTECH-315583

PATIENT
  Age: 46 Year
  Sex: Female

DRUGS (5)
  1. VINCRISTINE [Concomitant]
     Indication: LYMPHOMA
     Dosage: UNK
     Route: 042
     Dates: start: 20101011, end: 20110311
  2. CYCLOPHOSPHAMIDE [Concomitant]
     Indication: LYMPHOMA
     Dosage: UNK
     Route: 042
     Dates: start: 20101011, end: 20110311
  3. MABTHERA [Suspect]
     Indication: LYMPHOMA
     Dosage: 375 MG/M2, 1/MONTH
     Route: 042
     Dates: start: 20101011
  4. DOXORUBICIN [Concomitant]
     Indication: LYMPHOMA
     Dosage: UNK
     Route: 042
     Dates: start: 20101011, end: 20110311
  5. PREDNISONE [Concomitant]
     Indication: LYMPHOMA
     Dosage: UNK
     Route: 042
     Dates: start: 20101011, end: 20110311

REACTIONS (2)
  - RASH [None]
  - DYSPHONIA [None]
